FAERS Safety Report 7342779-5 (Version None)
Quarter: 2011Q1

REPORT INFORMATION
  Report Type: 
  Country: None (occurrence: None)
  Receive Date: 20110310
  Receipt Date: 20090213
  Transmission Date: 20110831
  Serious: Yes (Hospitalization, Other)
  Sender: FDA-Public Use
  Company Number: US-BAYER-200912720NA

PATIENT
  Sex: Male
  Weight: 101.59 kg

DRUGS (12)
  1. CLARITIN [Concomitant]
     Route: 048
  2. TRASYLOL [Suspect]
     Indication: CARDIAC OPERATION
     Route: 042
     Dates: start: 20040902
  3. DOBUTAMINE [Concomitant]
     Dosage: UNK
     Dates: start: 20040902
  4. NATRECOR [Concomitant]
     Dosage: UNK
     Dates: start: 20040902, end: 20040907
  5. NATRECOR [Concomitant]
     Dosage: UNK
     Dates: start: 20040908
  6. ALTACE [Concomitant]
     Indication: PROPHYLAXIS
     Dosage: UNK
     Dates: start: 20040907
  7. LASIX [Concomitant]
     Dosage: UNK
     Dates: start: 20040904
  8. ALTACE [Concomitant]
  9. CONTRAST MEDIA [Concomitant]
     Dosage: UNK
     Dates: start: 20040901
  10. TRASYLOL [Suspect]
     Indication: CORONARY ARTERY BYPASS
  11. ALBUMIN (HUMAN) [Concomitant]
     Dosage: UNK
     Dates: start: 20040904
  12. DOPAMINE [Concomitant]
     Dosage: UNK
     Dates: start: 20040902

REACTIONS (6)
  - INJURY [None]
  - RENAL FAILURE [None]
  - RENAL FAILURE ACUTE [None]
  - RENAL INJURY [None]
  - PAIN [None]
  - UNEVALUABLE EVENT [None]
